FAERS Safety Report 14909828 (Version 2)
Quarter: 2018Q2

REPORT INFORMATION
  Report Type: Report from Study
  Country: CO (occurrence: CO)
  Receive Date: 20180517
  Receipt Date: 20180628
  Transmission Date: 20180711
  Serious: No
  Sender: FDA-Public Use
  Company Number: CO-UCBSA-2018020849

PATIENT
  Age: 10 Year
  Sex: Male

DRUGS (2)
  1. LACOSAMIDE. [Suspect]
     Active Substance: LACOSAMIDE
     Indication: EPILEPSY
     Dosage: 20 MG, ONCE DAILY (QD)
     Route: 048
     Dates: start: 20180413, end: 20180416
  2. LACOSAMIDE. [Suspect]
     Active Substance: LACOSAMIDE
     Dosage: 10 MG, ONCE DAILY (QD)
     Route: 048
     Dates: start: 20180417, end: 20180529

REACTIONS (3)
  - Dizziness [Not Recovered/Not Resolved]
  - Off label use [Unknown]
  - Syncope [Recovered/Resolved]

NARRATIVE: CASE EVENT DATE: 20180413
